FAERS Safety Report 19593179 (Version 1)
Quarter: 2021Q3

REPORT INFORMATION
  Report Type: Spontaneous
  Country: US (occurrence: US)
  Receive Date: 20210721
  Receipt Date: 20210721
  Transmission Date: 20211014
  Serious: Yes (Hospitalization, Other)
  Sender: FDA-Public Use
  Company Number: None

PATIENT
  Age: 79 Year
  Sex: Female

DRUGS (2)
  1. CYCLOHOSPH [Concomitant]
  2. ESBRIET [Suspect]
     Active Substance: PIRFENIDONE
     Indication: IDIOPATHIC PULMONARY FIBROSIS
     Dosage: ?          OTHER DOSE:3 CAP;?
     Route: 048
     Dates: start: 20191121

REACTIONS (3)
  - Lung neoplasm malignant [None]
  - Colon cancer [None]
  - Intentional dose omission [None]

NARRATIVE: CASE EVENT DATE: 20210625
